FAERS Safety Report 25361376 (Version 2)
Quarter: 2025Q2

REPORT INFORMATION
  Report Type: Spontaneous
  Country: CO (occurrence: CO)
  Receive Date: 20250527
  Receipt Date: 20250604
  Transmission Date: 20250717
  Serious: Yes (Other)
  Sender: SANDOZ
  Company Number: CO-002147023-NVSC2025CO066786

PATIENT
  Sex: Female
  Weight: 61 kg

DRUGS (7)
  1. ATORVASTATIN [Suspect]
     Active Substance: ATORVASTATIN
     Indication: Blood cholesterol abnormal
     Route: 065
  2. ATORVASTATIN [Suspect]
     Active Substance: ATORVASTATIN
     Indication: Hypercholesterolaemia
  3. EZETIMIBE [Suspect]
     Active Substance: EZETIMIBE
     Indication: Product used for unknown indication
     Dosage: 10 MG, QD
     Route: 048
  4. ROSUVASTATIN [Suspect]
     Active Substance: ROSUVASTATIN
     Indication: Hypercholesterolaemia
     Route: 065
  5. INCLISIRAN [Suspect]
     Active Substance: INCLISIRAN
     Indication: Type IIa hyperlipidaemia
     Route: 058
     Dates: start: 20250129
  6. INCLISIRAN [Suspect]
     Active Substance: INCLISIRAN
     Route: 058
     Dates: start: 20250516
  7. INCLISIRAN [Suspect]
     Active Substance: INCLISIRAN
     Route: 065
     Dates: start: 20250508

REACTIONS (3)
  - Leukopenia [Recovering/Resolving]
  - Arteriosclerosis [Unknown]
  - Myopathy [Recovering/Resolving]
